FAERS Safety Report 8968813 (Version 1)
Quarter: 2012Q4

REPORT INFORMATION
  Report Type: Spontaneous
  Country: US (occurrence: None)
  Receive Date: 20121214
  Receipt Date: 20121214
  Transmission Date: 20130627
  Serious: Yes (Hospitalization, Congenital Anomaly, Other)
  Sender: FDA-Public Use
  Company Number: None

PATIENT
  Age: 62 Year
  Sex: Male
  Weight: 88.45 kg

DRUGS (1)
  1. LEVETIRACETAM [Suspect]
     Indication: TONIC-CLONIC SEIZURES
     Route: 048
     Dates: start: 20121130, end: 20121202

REACTIONS (1)
  - Convulsion [None]
